FAERS Safety Report 12365198 (Version 2)
Quarter: 2016Q2

REPORT INFORMATION
  Report Type: Report from Study
  Country: NL (occurrence: NL)
  Receive Date: 20160513
  Receipt Date: 20160523
  Transmission Date: 20160815
  Serious: Yes (Hospitalization, Other)
  Sender: FDA-Public Use
  Company Number: NL-BAXALTA-2016BLT003002

PATIENT
  Age: 63 Year
  Sex: Female

DRUGS (1)
  1. KIOVIG [Suspect]
     Active Substance: HUMAN IMMUNOGLOBULIN G
     Indication: GUILLAIN-BARRE SYNDROME
     Dosage: 30 G, EVERY 4 WK
     Route: 065
     Dates: start: 20160406

REACTIONS (5)
  - Pulmonary embolism [Recovered/Resolved]
  - Muscular weakness [Not Recovered/Not Resolved]
  - Loss of consciousness [Unknown]
  - Vomiting [Unknown]
  - Acute coronary syndrome [Recovering/Resolving]

NARRATIVE: CASE EVENT DATE: 20160409
